FAERS Safety Report 5765068-9 (Version None)
Quarter: 2008Q2

REPORT INFORMATION
  Report Type: 
  Country: None (occurrence: None)
  Receive Date: 20080606
  Receipt Date: 20080606
  Transmission Date: 20081010
  Serious: Yes (Life-Threatening, Other)
  Sender: FDA-Public Use
  Company Number: None

PATIENT
  Age: 80 Year
  Sex: Male
  Weight: 71.6683 kg

DRUGS (1)
  1. DIGITEK TAB 0.25 MG [Suspect]
     Indication: CARDIAC DISORDER
     Dosage: 0.25 1-DAILY
     Dates: start: 19800201, end: 19800415

REACTIONS (5)
  - ASTHENIA [None]
  - CARDIOACTIVE DRUG LEVEL INCREASED [None]
  - DIZZINESS [None]
  - DYSPNOEA [None]
  - NAUSEA [None]
